FAERS Safety Report 10418350 (Version 1)
Quarter: 2014Q2

REPORT INFORMATION
  Report Type: Spontaneous
  Country: US (occurrence: None)
  Receive Date: 20140616
  Receipt Date: 20140616
  Transmission Date: 20141212
  Serious: Yes (Hospitalization, Other)
  Sender: FDA-Public Use
  Company Number: 2013-003150

PATIENT
  Sex: Female

DRUGS (2)
  1. ACTONEL [Suspect]
     Indication: OSTEOPOROSIS
     Route: 048
     Dates: start: 200702, end: 200902
  2. BONIVA (IBANDRONATE SODIUM) [Suspect]
     Indication: OSTEOPOROSIS
     Route: 048

REACTIONS (6)
  - Femur fracture [None]
  - Pathological fracture [None]
  - Bone disorder [None]
  - Stress fracture [None]
  - Pain [None]
  - Low turnover osteopathy [None]
